FAERS Safety Report 11740506 (Version 2)
Quarter: 2015Q4

REPORT INFORMATION
  Report Type: Spontaneous
  Country: US (occurrence: US)
  Receive Date: 20151110
  Receipt Date: 20151120
  Transmission Date: 20160304
  Serious: No
  Sender: FDA-Public Use
  Company Number: US-ELI_LILLY_AND_COMPANY-US201207006417

PATIENT
  Age: 61 Year
  Sex: Female

DRUGS (5)
  1. FORTEO [Suspect]
     Active Substance: TERIPARATIDE
     Indication: OSTEOPOROSIS
     Dosage: 20 UG, QD
  2. DEXEDRIN [Concomitant]
     Dosage: 3 DF, QD
  3. HUMIRA [Concomitant]
     Active Substance: ADALIMUMAB
  4. FORTEO [Suspect]
     Active Substance: TERIPARATIDE
     Dosage: 20 UG, QD
  5. DEXEDRIN [Concomitant]
     Dosage: 1 DF, QD

REACTIONS (3)
  - Headache [Not Recovered/Not Resolved]
  - Pain in jaw [Unknown]
  - Dry throat [Unknown]

NARRATIVE: CASE EVENT DATE: 20130319
